FAERS Safety Report 15201765 (Version 3)
Quarter: 2019Q3

REPORT INFORMATION
  Report Type: Report from Study
  Country: None (occurrence: DE)
  Receive Date: 20180726
  Receipt Date: 20190825
  Transmission Date: 20191004
  Serious: Yes (Other)
  Sender: FDA-Public Use
  Company Number: DE-ABBVIE-18K-062-2430841-00

PATIENT
  Age: 12 Year
  Sex: Female
  Weight: 42.5 kg

DRUGS (4)
  1. MTX [Concomitant]
     Active Substance: METHOTREXATE SODIUM
     Indication: JUVENILE IDIOPATHIC ARTHRITIS
     Dates: start: 20080601
  2. ONDANSETRON [Concomitant]
     Active Substance: ONDANSETRON
     Indication: JUVENILE IDIOPATHIC ARTHRITIS
     Route: 048
     Dates: start: 20161101
  3. FOLIC ACID. [Concomitant]
     Active Substance: FOLIC ACID
     Indication: JUVENILE IDIOPATHIC ARTHRITIS
     Route: 048
     Dates: start: 20080601
  4. HUMIRA [Suspect]
     Active Substance: ADALIMUMAB
     Indication: JUVENILE IDIOPATHIC ARTHRITIS
     Route: 058
     Dates: start: 20150908

REACTIONS (4)
  - Conjunctival filtering bleb leak [Recovered/Resolved]
  - Conjunctival filtering bleb leak [Recovered/Resolved]
  - Urinary tract infection [Recovered/Resolved]
  - Conjunctival filtering bleb leak [Recovered/Resolved]

NARRATIVE: CASE EVENT DATE: 201705
